FAERS Safety Report 15580138 (Version 1)
Quarter: 2018Q4

REPORT INFORMATION
  Report Type: Spontaneous
  Country: US (occurrence: US)
  Receive Date: 20181102
  Receipt Date: 20181102
  Transmission Date: 20190205
  Serious: Yes (Hospitalization)
  Sender: FDA-Public Use
  Company Number: None

PATIENT
  Age: 45 Year
  Sex: Female
  Weight: 67.5 kg

DRUGS (1)
  1. MIRENA [Suspect]
     Active Substance: LEVONORGESTREL
     Indication: CONTRACEPTION
     Dosage: ?          OTHER ROUTE:IUD?

REACTIONS (8)
  - Neoplasm [None]
  - Haemorrhage [None]
  - Oedema peripheral [None]
  - Vision blurred [None]
  - Abdominal pain [None]
  - Hypertension [None]
  - Chest pain [None]
  - Ovarian atrophy [None]

NARRATIVE: CASE EVENT DATE: 20150101
